FAERS Safety Report 22043377 (Version 1)
Quarter: 2023Q1

REPORT INFORMATION
  Report Type: Spontaneous
  Country: None (occurrence: US)
  Receive Date: 20230228
  Receipt Date: 20230228
  Transmission Date: 20230418
  Serious: Yes (Hospitalization, Other)
  Sender: FDA-Public Use
  Company Number: US-Ajanta Pharma USA Inc.-2138531

PATIENT
  Age: 54 Year
  Sex: Male
  Weight: 81.818 kg

DRUGS (2)
  1. DULOXETINE [Suspect]
     Active Substance: DULOXETINE
     Indication: Fibromyalgia
     Route: 048
     Dates: start: 2022, end: 202211
  2. CELEBREX [Suspect]
     Active Substance: CELECOXIB
     Dates: start: 2022, end: 202211

REACTIONS (8)
  - Gastrointestinal haemorrhage [Recovered/Resolved]
  - Intra-abdominal haematoma [Recovered/Resolved]
  - Duodenal obstruction [Recovered/Resolved]
  - Abdominal pain upper [Not Recovered/Not Resolved]
  - Anaemia [Recovered/Resolved]
  - Gastrointestinal inflammation [Recovered/Resolved]
  - Drug interaction [Recovered/Resolved]
  - Somnolence [Recovered/Resolved]

NARRATIVE: CASE EVENT DATE: 20220101
